FAERS Safety Report 21108726 (Version 1)
Quarter: 2022Q3

REPORT INFORMATION
  Report Type: Spontaneous
  Country: DK (occurrence: DK)
  Receive Date: 20220721
  Receipt Date: 20220721
  Transmission Date: 20221027
  Serious: Yes (Death, Hospitalization)
  Sender: FDA-Public Use
  Company Number: None

PATIENT
  Age: 69 Year
  Sex: Male

DRUGS (2)
  1. BENDAMUSTINE [Suspect]
     Active Substance: BENDAMUSTINE
     Indication: Metastases to bone marrow
     Dosage: DOSE: 181 MG/DAY DAY 1 + 2, UNKNOWN DOSE INTERVAL.  STRENGTH: 2.5 MG/ML , UNIT DOSE : 181 MG , DURAT
     Dates: start: 20191216, end: 202003
  2. RITUXIMAB [Suspect]
     Active Substance: RITUXIMAB
     Indication: Metastases to bone marrow
     Dosage: UNIT DOSE: 747 MG DAY 1, UNKNOWN DOSE INTERVAL. STRENGTH:500 MG , DURATION : 3 MONTH
     Dates: start: 20191216, end: 202003

REACTIONS (8)
  - Obstructive airways disorder [Fatal]
  - Asthenia [Fatal]
  - Dyspnoea [Fatal]
  - Myelosuppression [Fatal]
  - Anaemia [Fatal]
  - General physical health deterioration [Fatal]
  - Pneumonia [Fatal]
  - Weight decreased [Fatal]

NARRATIVE: CASE EVENT DATE: 20200301
